FAERS Safety Report 11982956 (Version 2)
Quarter: 2016Q1

REPORT INFORMATION
  Report Type: Spontaneous
  Country: CA (occurrence: CA)
  Receive Date: 20160201
  Receipt Date: 20160329
  Transmission Date: 20160526
  Serious: Yes (Life-Threatening, Hospitalization)
  Sender: FDA-Public Use
  Company Number: CA-JNJFOC-20160118148

PATIENT
  Age: 61 Year
  Sex: Female
  Weight: 117.03 kg

DRUGS (16)
  1. LOPRESSOR [Concomitant]
     Active Substance: METOPROLOL TARTRATE
     Dosage: DOSE IS 200 (UNITS UNSPECIFIED)
     Route: 048
  2. ADVAIR HFA [Concomitant]
     Active Substance: FLUTICASONE PROPIONATE\SALMETEROL XINAFOATE
     Dosage: DOSE IS 500 (1 PUFF)
     Route: 060
  3. AMIODARONE [Concomitant]
     Active Substance: AMIODARONE
     Dosage: DOSE IS 200 (UNITS UNSPECIFIED)
     Route: 048
  4. OXYNEO [Concomitant]
     Active Substance: OXYCODONE
     Dosage: DOSE IS 30 (UNITS UNSPECIFIED)
     Route: 048
  5. SYNTHROID [Concomitant]
     Active Substance: LEVOTHYROXINE SODIUM
     Dosage: DOSE IS 0-05 (UNITS UNSPECIFIED)
     Route: 048
  6. ALTACE [Concomitant]
     Active Substance: RAMIPRIL
     Dosage: DOSE IS 10 (UNITS UNSPECIFIED)
     Route: 048
  7. VENTOLIN [Concomitant]
     Active Substance: ALBUTEROL SULFATE
     Route: 065
  8. INVOKANA [Suspect]
     Active Substance: CANAGLIFLOZIN
     Indication: TYPE 2 DIABETES MELLITUS
     Route: 048
     Dates: start: 20151112, end: 20151223
  9. INVOKANA [Suspect]
     Active Substance: CANAGLIFLOZIN
     Indication: TYPE 2 DIABETES MELLITUS
     Route: 048
     Dates: start: 20151014, end: 201511
  10. LASIX [Concomitant]
     Active Substance: FUROSEMIDE
     Dosage: 80, HALF TABLET
     Route: 048
  11. WARFARIN [Concomitant]
     Active Substance: WARFARIN
     Dosage: DOSE IS 5 MG/ 1 MG
     Route: 065
  12. PROZAC [Concomitant]
     Active Substance: FLUOXETINE HYDROCHLORIDE
     Dosage: DOSE IS 60 (UNITS UNSPECIFIED)
     Route: 048
  13. ALDACTONE [Concomitant]
     Active Substance: SPIRONOLACTONE
     Dosage: 25, HALF TABLET
     Route: 065
  14. METFORMIN [Concomitant]
     Active Substance: METFORMIN HYDROCHLORIDE
     Dosage: DOSE IS 500 (UNITS UNSPECIFIED)
     Route: 048
  15. PERCOCET [Concomitant]
     Active Substance: ACETAMINOPHEN\OXYCODONE HYDROCHLORIDE
     Route: 048
  16. CRESTOR [Concomitant]
     Active Substance: ROSUVASTATIN CALCIUM
     Dosage: DOSE IS 40 (UNITS UNSPECIFIED)
     Route: 048

REACTIONS (1)
  - Acute kidney injury [Recovered/Resolved]

NARRATIVE: CASE EVENT DATE: 20151223
